FAERS Safety Report 8420955-8 (Version None)
Quarter: 2012Q2

REPORT INFORMATION
  Report Type: 
  Country: None (occurrence: None)
  Receive Date: 20120608
  Receipt Date: 20120607
  Transmission Date: 20120825
  Serious: Yes (Life-Threatening, Hospitalization, Other)
  Sender: FDA-Public Use
  Company Number: MX-PFIZER INC-2012137264

PATIENT
  Age: 51 Year
  Sex: Female
  Weight: 55 kg

DRUGS (1)
  1. VARENICLINE TARTRATE [Suspect]
     Indication: SMOKING CESSATION THERAPY
     Dosage: 1 MG, 2X/DAY
     Route: 048
     Dates: end: 20120504

REACTIONS (4)
  - INFARCTION [None]
  - ABDOMINAL INFECTION [None]
  - ABDOMINAL PAIN UPPER [None]
  - CONSTIPATION [None]
